FAERS Safety Report 9719027 (Version 2)
Quarter: 2014Q1

REPORT INFORMATION
  Report Type: Spontaneous
  Country: US (occurrence: US)
  Receive Date: 20131127
  Receipt Date: 20140101
  Transmission Date: 20141002
  Serious: No
  Sender: FDA-Public Use
  Company Number: US-B.I. PHARMACEUTICALS,INC./RIDGEFIELD-2013-BI-37786BP

PATIENT
  Sex: Female

DRUGS (5)
  1. MICARDIS [Suspect]
     Indication: HYPERTENSION
     Dosage: 20 MG
     Route: 048
     Dates: start: 2003
  2. MICARDIS [Suspect]
     Dosage: 40 MG
     Route: 048
     Dates: start: 2004
  3. MICARDIS [Suspect]
     Dosage: 60 MG
     Route: 048
     Dates: start: 2009
  4. MICARDIS [Suspect]
     Dosage: 80 MG
     Route: 048
  5. MICARDIS [Suspect]
     Dosage: 160 MG
     Route: 048

REACTIONS (4)
  - Supportive care [Unknown]
  - Prescribed overdose [Unknown]
  - Drug ineffective [Unknown]
  - Product quality issue [Unknown]
